FAERS Safety Report 21416863 (Version 4)
Quarter: 2022Q4

REPORT INFORMATION
  Report Type: Report from Study
  Country: US (occurrence: US)
  Receive Date: 20221006
  Receipt Date: 20221107
  Transmission Date: 20230113
  Serious: Yes (Hospitalization, Other)
  Sender: FDA-Public Use
  Company Number: US-JAZZ-2022-US-027533

PATIENT
  Age: 26 Year
  Sex: Female

DRUGS (11)
  1. XYREM [Suspect]
     Active Substance: SODIUM OXYBATE
     Indication: Narcolepsy
     Dosage: 3.5 GRAM, BID
     Dates: start: 202207
  2. XYREM [Suspect]
     Active Substance: SODIUM OXYBATE
     Indication: Cataplexy
  3. XYREM [Suspect]
     Active Substance: SODIUM OXYBATE
     Indication: Somnolence
  4. NALTREXONE [Suspect]
     Active Substance: NALTREXONE
     Indication: Product used for unknown indication
     Dosage: UNK
     Dates: start: 20221003
  5. HYDROXYZINE HYDROCHLORIDE [Suspect]
     Active Substance: HYDROXYZINE HYDROCHLORIDE
     Indication: Autonomic nervous system imbalance
     Dosage: UNK
     Dates: start: 20220829
  6. MUCINEX [Concomitant]
     Active Substance: GUAIFENESIN
     Dosage: 0000
     Dates: start: 20220630
  7. OXYMETAZOLINE HYDROCHLORIDE [Concomitant]
     Active Substance: OXYMETAZOLINE HYDROCHLORIDE
     Dosage: 0000
     Dates: start: 20220630
  8. FLONASE ALLERGY RELIEF [Concomitant]
     Active Substance: FLUTICASONE PROPIONATE
     Dosage: 0000
     Dates: start: 20220605
  9. BENADRYL ALLERGY + COLD [Concomitant]
     Dosage: UNK
     Dates: start: 20220829
  10. PEPCID AC [Concomitant]
     Active Substance: FAMOTIDINE
     Dosage: UNK
     Dates: start: 20220913
  11. CLONAZEPAM [Concomitant]
     Active Substance: CLONAZEPAM
     Indication: Product used for unknown indication
     Dosage: UNK
     Dates: start: 20220930

REACTIONS (12)
  - Panic attack [Recovered/Resolved]
  - Surgery [Unknown]
  - Ehlers-Danlos syndrome [Unknown]
  - Autonomic nervous system imbalance [Unknown]
  - Illness [Recovered/Resolved]
  - Hypersensitivity [Unknown]
  - Swelling [Unknown]
  - Salivary gland enlargement [Unknown]
  - Hyperhidrosis [Unknown]
  - Anxiety [Recovered/Resolved]
  - Peripheral swelling [Unknown]
  - Intentional product use issue [Unknown]

NARRATIVE: CASE EVENT DATE: 20170101
